FAERS Safety Report 4653636-7 (Version None)
Quarter: 2005Q2

REPORT INFORMATION
  Report Type: 
  Country: None (occurrence: None)
  Receive Date: 20050505
  Receipt Date: 20050426
  Transmission Date: 20051028
  Serious: Yes (Other)
  Sender: FDA-Public Use
  Company Number: NI-ROCHE-403391

PATIENT
  Age: 73 Year
  Sex: Male

DRUGS (1)
  1. XELODA [Suspect]
     Dosage: 7 TABS (150 MG/TAB)/DAY.
     Route: 048
     Dates: start: 20041129

REACTIONS (2)
  - CHOLECYSTITIS INFECTIVE [None]
  - PALMAR-PLANTAR ERYTHRODYSAESTHESIA SYNDROME [None]
